FAERS Safety Report 5318960-3 (Version None)
Quarter: 2007Q2

REPORT INFORMATION
  Report Type: 
  Country: None (occurrence: None)
  Receive Date: 20070508
  Receipt Date: 20070426
  Transmission Date: 20071010
  Serious: Yes (Death, Other)
  Sender: FDA-Public Use
  Company Number: US-AVENTIS-200713019US

PATIENT

DRUGS (3)
  1. LOVENOX [Suspect]
     Dosage: DOSE: UNK
     Dates: start: 20070401
  2. INTEGRILIN [Suspect]
     Dosage: DOSE: UNK
     Dates: start: 20070401
  3. ANTITHROMBOTIC AGENTS [Concomitant]
     Dosage: DOSE: UNK
     Dates: start: 20070401

REACTIONS (3)
  - CARDIAC ARREST [None]
  - DEATH [None]
  - THROMBOSIS [None]
